FAERS Safety Report 6321738-5 (Version None)
Quarter: 2009Q3

REPORT INFORMATION
  Report Type: 
  Country: None (occurrence: None)
  Receive Date: 20090824
  Receipt Date: 20090819
  Transmission Date: 20100115
  Serious: Yes (Death)
  Sender: FDA-Public Use
  Company Number: MX-ROCHE-644351

PATIENT
  Sex: Male

DRUGS (4)
  1. VALCYTE [Suspect]
     Indication: PROPHYLAXIS
     Dosage: FREQUENCY REPORTED AS QD
     Route: 065
     Dates: start: 20090317, end: 20090617
  2. PREDNISONE TAB [Concomitant]
     Indication: DRUG USE FOR UNKNOWN INDICATION
     Dosage: START AND STOP DATE, DOSE AND FREQUENCY REPORTED AS UNKNOWN
     Route: 065
  3. CYCLOSPORINE [Concomitant]
     Indication: DRUG USE FOR UNKNOWN INDICATION
     Dosage: START AND STOP DATE, DOSE AND FREQUENCY REPORTED AS UNKNOWN
     Route: 065
  4. AZATHIOPRINE [Concomitant]
     Indication: DRUG USE FOR UNKNOWN INDICATION
     Dosage: START AND STOP DATE, DOSE AND FREQUENCY REPORTED AS UNKNOWN
     Route: 065

REACTIONS (2)
  - INFLUENZA [None]
  - PNEUMONITIS [None]
